FAERS Safety Report 6069521-2 (Version None)
Quarter: 2009Q1

REPORT INFORMATION
  Report Type: 
  Country: None (occurrence: None)
  Receive Date: 20090206
  Receipt Date: 20090130
  Transmission Date: 20090719
  Serious: Yes (Other)
  Sender: FDA-Public Use
  Company Number: NL-B.I. PHARMACEUTICALS,INC./RIDGEFIELD-2008-NL-00841NL

PATIENT
  Sex: Male

DRUGS (13)
  1. BERODUAL DOSISAEROSOL [Suspect]
     Dates: start: 20080904
  2. BISOLBRUIS [Suspect]
     Indication: ASTHMA
     Dosage: 600MG
     Route: 048
     Dates: start: 20040123
  3. BISOLBRUIS [Suspect]
     Indication: CHRONIC OBSTRUCTIVE PULMONARY DISEASE
  4. SPIRIVA [Suspect]
     Indication: ASTHMA
     Dosage: 2.5MCG
     Route: 055
     Dates: start: 20040122
  5. SPIRIVA [Suspect]
     Indication: CHRONIC OBSTRUCTIVE PULMONARY DISEASE
  6. SYMBICORT TURBU [Concomitant]
     Indication: ASTHMA
     Dosage: 400/12
     Route: 055
     Dates: start: 20041001
  7. SYMBICORT TURBU [Concomitant]
     Indication: CHRONIC OBSTRUCTIVE PULMONARY DISEASE
  8. SERETIDE [Concomitant]
     Indication: ASTHMA
     Dosage: 25/250
     Route: 055
     Dates: start: 20080904
  9. SERETIDE [Concomitant]
     Indication: CHRONIC OBSTRUCTIVE PULMONARY DISEASE
  10. VENTOLIN [Concomitant]
     Indication: ASTHMA
     Route: 055
     Dates: start: 20080513
  11. VENTOLIN [Concomitant]
     Indication: CHRONIC OBSTRUCTIVE PULMONARY DISEASE
  12. COLCHICINE [Concomitant]
     Indication: GOUT
  13. DICLOFENAC [Concomitant]
     Indication: GOUT

REACTIONS (2)
  - MEDICATION ERROR [None]
  - OESOPHAGEAL CARCINOMA [None]
